FAERS Safety Report 7907268-5 (Version None)
Quarter: 2011Q4

REPORT INFORMATION
  Report Type: 
  Country: None (occurrence: None)
  Receive Date: 20111110
  Receipt Date: 20111028
  Transmission Date: 20120403
  Serious: Yes (Hospitalization)
  Sender: FDA-Public Use
  Company Number: US-GLAXOSMITHKLINE-A0871287A

PATIENT
  Age: 64 Year
  Sex: Male
  Weight: 111.8 kg

DRUGS (7)
  1. TOPROL-XL [Concomitant]
  2. AMARYL [Concomitant]
     Dates: start: 20020919, end: 20021003
  3. LIPITOR [Concomitant]
  4. BAYCOL [Concomitant]
  5. GLYBURIDE [Concomitant]
  6. RANITIDINE [Concomitant]
  7. AVANDIA [Suspect]
     Indication: TYPE 2 DIABETES MELLITUS
     Route: 048
     Dates: start: 20000101, end: 20021001

REACTIONS (3)
  - CARDIAC FAILURE CONGESTIVE [None]
  - CORONARY ARTERY STENOSIS [None]
  - ACUTE PULMONARY OEDEMA [None]
